FAERS Safety Report 25883629 (Version 1)
Quarter: 2025Q4

REPORT INFORMATION
  Report Type: Spontaneous
  Country: US (occurrence: US)
  Receive Date: 20251006
  Receipt Date: 20251006
  Transmission Date: 20260117
  Serious: Yes (Other)
  Sender: JOHNSON AND JOHNSON
  Company Number: US-JNJFOC-20250944177

PATIENT

DRUGS (1)
  1. INVEGA [Suspect]
     Active Substance: PALIPERIDONE
     Indication: Product used for unknown indication
     Route: 048

REACTIONS (6)
  - Oculogyric crisis [Recovering/Resolving]
  - Anhedonia [Recovering/Resolving]
  - Apathy [Recovering/Resolving]
  - Akathisia [Recovering/Resolving]
  - Restless legs syndrome [Recovering/Resolving]
  - Hypersomnia [Recovering/Resolving]
